FAERS Safety Report 22358610 (Version 1)
Quarter: 2023Q2

REPORT INFORMATION
  Report Type: Spontaneous
  Country: ES (occurrence: ES)
  Receive Date: 20230524
  Receipt Date: 20230524
  Transmission Date: 20230721
  Serious: Yes (Other)
  Sender: FDA-Public Use
  Company Number: ES-AEMPS-1363540

PATIENT
  Sex: Female
  Weight: 70 kg

DRUGS (3)
  1. LAMOTRIGINE [Suspect]
     Active Substance: LAMOTRIGINE
     Indication: Bipolar II disorder
     Dosage: 200 MILLIGRAM, ONCE A DAY (0-0-1)
     Route: 048
     Dates: start: 20180402
  2. LAMOTRIGINE [Suspect]
     Active Substance: LAMOTRIGINE
     Indication: Bipolar II disorder
     Dosage: 50 MILLIGRAM, ONCE A DAY (0-0-1)
     Route: 048
     Dates: start: 20180402
  3. MIRTAZAPINE [Concomitant]
     Active Substance: MIRTAZAPINE
     Indication: Insomnia
     Dosage: UNK (0-0-0-1)
     Route: 048
     Dates: start: 20200715

REACTIONS (3)
  - Pruritus [Recovered/Resolved]
  - Alopecia [Not Recovered/Not Resolved]
  - Dandruff [Recovered/Resolved]

NARRATIVE: CASE EVENT DATE: 20200815
